FAERS Safety Report 9995381 (Version 2)
Quarter: 2014Q2

REPORT INFORMATION
  Report Type: Spontaneous
  Country: US (occurrence: US)
  Receive Date: 20140311
  Receipt Date: 20140415
  Transmission Date: 20141212
  Serious: Yes (Hospitalization)
  Sender: FDA-Public Use
  Company Number: US-INCYTE CORPORATION-2014IN000576

PATIENT
  Age: 77 Year
  Sex: Female
  Weight: 57.14 kg

DRUGS (2)
  1. JAKAFI [Suspect]
     Indication: MYELOFIBROSIS
     Dosage: 10 MG AM AND 20 MG PM
     Route: 048
     Dates: start: 201209
  2. JAKAFI [Suspect]
     Dosage: 10 MG, BID
     Route: 048
     Dates: start: 201309

REACTIONS (2)
  - Nerve compression [Unknown]
  - Osteoarthritis [Recovering/Resolving]
